FAERS Safety Report 13017337 (Version 2)
Quarter: 2017Q1

REPORT INFORMATION
  Report Type: Spontaneous
  Country: US (occurrence: US)
  Receive Date: 20161212
  Receipt Date: 20170103
  Transmission Date: 20170428
  Serious: Yes (Other)
  Sender: FDA-Public Use
  Company Number: US-PFIZER INC-2016241718

PATIENT
  Age: 59 Year
  Sex: Female
  Weight: 45 kg

DRUGS (23)
  1. VITAMIN D3 [Concomitant]
     Active Substance: CHOLECALCIFEROL
     Dosage: 5000 IU, DAILY
     Route: 048
  2. LEVETIRACETAM. [Concomitant]
     Active Substance: LEVETIRACETAM
     Dosage: 750 MG, DAILY
     Route: 048
  3. LEVOTHYROXINE /00068002/ [Concomitant]
     Active Substance: LEVOTHYROXINE
     Dosage: 50 UG, 1X/DAY [TAKE 50MCG BY MOUTH EVERY MORNING]
     Route: 048
  4. XANAX [Concomitant]
     Active Substance: ALPRAZOLAM
     Indication: RESTLESSNESS
     Dosage: 0.5 MG, UNK
  5. ALPRAZOLAM. [Concomitant]
     Active Substance: ALPRAZOLAM
     Indication: ANXIETY
     Dosage: 0.5 MG, AS NEEDED [TAKE 0.5MG BY MOUTH TWO TIMES A DAY]
     Route: 048
  6. BUSPIRONE [Concomitant]
     Active Substance: BUSPIRONE HYDROCHLORIDE
     Dosage: 5 MG, 2X/DAY
     Route: 048
  7. CITALOPRAM [Concomitant]
     Active Substance: CITALOPRAM HYDROBROMIDE
     Dosage: 20 MG, DAILY
     Route: 048
  8. CYCLOSPORINE. [Concomitant]
     Active Substance: CYCLOSPORINE
     Indication: IMMUNOSUPPRESSANT DRUG THERAPY
     Dosage: 75 MG, DAILY (50MG IN THE MORNING AND 25MG AT NIGHT)
     Route: 048
     Dates: start: 2008
  9. INSULIN PUMP CARTRIDGE [Concomitant]
     Dosage: UNK, AS NEEDED
     Route: 058
  10. MONTELUKAST /01362602/ [Concomitant]
     Dosage: 5 MG, 1X/DAY [CHEW 1 TABLET (5MG TOTAL) NIGHTLY
  11. PREDNISONE. [Concomitant]
     Active Substance: PREDNISONE
     Dosage: 5 MG, DAILY
     Route: 048
  12. TRAZODONE /00447702/ [Concomitant]
     Active Substance: TRAZODONE HYDROCHLORIDE
     Dosage: UNK
  13. AZITHROMYCIN ANHYDROUS. [Concomitant]
     Active Substance: AZITHROMYCIN ANHYDROUS
     Dosage: 250 MG, ALTERNATE DAY (TAKE 1 TAB ON MON-WED-FRI AM ONLY; 3 (THREE) TIMES A WEEK FOR 90 DAYS)
     Route: 048
  14. CYCLOSPORINE. [Concomitant]
     Active Substance: CYCLOSPORINE
     Dosage: UNK
  15. CALCIUM CARBONATE. [Concomitant]
     Active Substance: CALCIUM CARBONATE
     Dosage: 500 MG, 2X/DAY
     Route: 048
  16. MYCOPHENOLATE [Concomitant]
     Active Substance: MYCOPHENOLIC ACID
     Dosage: 500 MG, 2X/DAY
     Route: 048
  17. VFEND [Suspect]
     Active Substance: VORICONAZOLE
     Indication: ONYCHOMYCOSIS
     Dosage: 200 MG, 2X/DAY (ONE IN THE MORNING AND ONE IN THE EVENING)
     Route: 048
     Dates: start: 20160216
  18. VALGANCICLOVIR /01542202/ [Concomitant]
     Dosage: 450 MG, DAILY
     Route: 048
  19. PRAVASTATIN /00880402/ [Concomitant]
     Active Substance: PRAVASTATIN SODIUM
     Dosage: 40 MG, 1X/DAY [TAKE 40MG BY MOUTH NIGHTLY]
     Route: 048
  20. TRAZODONE /00447702/ [Concomitant]
     Active Substance: TRAZODONE HYDROCHLORIDE
     Dosage: 75 MG, UNK (TAKE 1.5 TABLET)
  21. CELLCEPT [Concomitant]
     Active Substance: MYCOPHENOLATE MOFETIL\MYCOPHENOLATE MOFETIL HYDROCHLORIDE
     Indication: IMMUNOSUPPRESSANT DRUG THERAPY
     Dosage: UNK
  22. MAGNESIUM OXIDE. [Concomitant]
     Active Substance: MAGNESIUM OXIDE
     Dosage: 400 MG, DAILY
     Route: 048
  23. TRAZODONE /00447702/ [Concomitant]
     Active Substance: TRAZODONE HYDROCHLORIDE
     Indication: RESTLESSNESS
     Dosage: 50 MG, 1X/DAY [TAKE 50MG BY MOUTH NIGHTLY]
     Route: 048

REACTIONS (8)
  - Contusion [Unknown]
  - Rib fracture [Not Recovered/Not Resolved]
  - Fall [Unknown]
  - Cognitive disorder [Unknown]
  - Gastritis [Unknown]
  - Abdominal discomfort [Unknown]
  - Pain [Recovering/Resolving]
  - Malaise [Unknown]

NARRATIVE: CASE EVENT DATE: 20161128
